FAERS Safety Report 6836548-X (Version None)
Quarter: 2010Q3

REPORT INFORMATION
  Report Type: 
  Country: None (occurrence: None)
  Receive Date: 20100713
  Receipt Date: 20100706
  Transmission Date: 20110219
  Serious: Yes (Hospitalization, Other)
  Sender: FDA-Public Use
  Company Number: US-TEVA-236715USA

PATIENT
  Sex: Male

DRUGS (3)
  1. CLARAVIS [Suspect]
     Indication: ACNE CYSTIC
     Route: 048
  2. NAPROXEN 250 MG, 375 MG + 500 MG TABLETS [Suspect]
     Indication: ARTHRALGIA
     Route: 048
     Dates: start: 20100201
  3. OMEPRAZOLE [Concomitant]

REACTIONS (2)
  - ABDOMINAL PAIN [None]
  - GASTRIC ULCER HAEMORRHAGE [None]
